FAERS Safety Report 12492921 (Version 3)
Quarter: 2016Q3

REPORT INFORMATION
  Report Type: Spontaneous
  Country: US (occurrence: US)
  Receive Date: 20160623
  Receipt Date: 20160808
  Transmission Date: 20161109
  Serious: No
  Sender: FDA-Public Use
  Company Number: US-BEH-2015057324

PATIENT
  Sex: Female
  Weight: 76 kg

DRUGS (18)
  1. VITAMIN C [Concomitant]
     Active Substance: ASCORBIC ACID
  2. CLONAZEPAM. [Concomitant]
     Active Substance: CLONAZEPAM
  3. MULTIVITAMINS AND IRON [Concomitant]
  4. EPIPEN [Concomitant]
     Active Substance: EPINEPHRINE
  5. SYNTHROID [Concomitant]
     Active Substance: LEVOTHYROXINE SODIUM
  6. IBUPROFEN. [Concomitant]
     Active Substance: IBUPROFEN
  7. VITAMIN D2 [Concomitant]
     Active Substance: ERGOCALCIFEROL
  8. HIZENTRA [Suspect]
     Active Substance: HUMAN IMMUNOGLOBULIN G
     Indication: IMMUNODEFICIENCY
     Route: 058
  9. ACETAMINOPHEN. [Concomitant]
     Active Substance: ACETAMINOPHEN
  10. DIPHENHYDRAMINE. [Concomitant]
     Active Substance: DIPHENHYDRAMINE
  11. LIDOCAINE. [Concomitant]
     Active Substance: LIDOCAINE
  12. APIDRA [Concomitant]
     Active Substance: INSULIN GLULISINE
  13. CALCIUM [Concomitant]
     Active Substance: CALCIUM
  14. CLINDAMYCIN [Concomitant]
     Active Substance: CLINDAMYCIN\CLINDAMYCIN PHOSPHATE
  15. METFORMIN [Concomitant]
     Active Substance: METFORMIN HYDROCHLORIDE
  16. CEVIMELINE. [Concomitant]
     Active Substance: CEVIMELINE
  17. PROBIOTIC [Concomitant]
     Active Substance: PROBIOTICS NOS
  18. ATORVASTATIN [Concomitant]
     Active Substance: ATORVASTATIN

REACTIONS (2)
  - Headache [Recovered/Resolved]
  - Pyrexia [Recovered/Resolved]
